FAERS Safety Report 8397242-X (Version None)
Quarter: 2012Q2

REPORT INFORMATION
  Report Type: 
  Country: None (occurrence: None)
  Receive Date: 20120530
  Receipt Date: 20120407
  Transmission Date: 20120825
  Serious: Yes (Hospitalization)
  Sender: FDA-Public Use
  Company Number: US-ELI_LILLY_AND_COMPANY-US201204002204

PATIENT
  Sex: Male
  Weight: 76.644 kg

DRUGS (1)
  1. PRASUGREL HYDROCHLORIDE [Suspect]
     Dosage: UNK
     Dates: start: 20120210

REACTIONS (2)
  - RASH [None]
  - PRURITUS [None]
